FAERS Safety Report 20663514 (Version 1)
Quarter: 2022Q2

REPORT INFORMATION
  Report Type: Spontaneous
  Country: US (occurrence: US)
  Receive Date: 20220401
  Receipt Date: 20220401
  Transmission Date: 20220721
  Serious: Yes (Hospitalization)
  Sender: FDA-Public Use
  Company Number: US-drreddys-LIT/USA/22/0148221

PATIENT
  Age: 10 Year
  Sex: Female

DRUGS (11)
  1. CIPROFLOXACIN [Suspect]
     Active Substance: CIPROFLOXACIN
     Indication: Fungal pharyngitis
  2. VANCOMYCIN [Suspect]
     Active Substance: VANCOMYCIN
     Indication: Fungal pharyngitis
  3. MEROPENEM [Suspect]
     Active Substance: MEROPENEM
     Indication: Fungal pharyngitis
  4. VORICONAZOLE [Suspect]
     Active Substance: VORICONAZOLE
     Indication: Herpes simplex
  5. ACYCLOVIR [Suspect]
     Active Substance: ACYCLOVIR
     Indication: Herpes simplex
  6. PENTAMIDINE [Suspect]
     Active Substance: PENTAMIDINE
     Indication: Antifungal prophylaxis
  7. AMPHOTERICIN B [Suspect]
     Active Substance: AMPHOTERICIN B
     Indication: Product used for unknown indication
  8. POSACONAZOLE [Suspect]
     Active Substance: POSACONAZOLE
     Indication: Product used for unknown indication
  9. EQUINE THYMOCYTE IMMUNE GLOBULIN [Concomitant]
     Active Substance: EQUINE THYMOCYTE IMMUNE GLOBULIN
     Indication: Prophylaxis against graft versus host disease
     Dosage: 4 DOSES ON DAY 2, 4 AND 6 PRIOR TO TRANSPLANTATION AND POST TRANSPLANT ON DAY 2, 4, 6, 8, 10 AND 12
  10. CYCLOPHOSPHAMIDE [Concomitant]
     Active Substance: CYCLOPHOSPHAMIDE
     Indication: Prophylaxis against graft versus host disease
     Dosage: 4 DOSES ON DAY 2, 4 AND 6 PRIOR TO TRANSPLANTATION
  11. CYCLOSPORINE [Concomitant]
     Active Substance: CYCLOSPORINE
     Indication: Prophylaxis against graft versus host disease
     Dosage: ON DAY 2, 4, 6, 8, 10 AND 12

REACTIONS (2)
  - Acute kidney injury [Unknown]
  - Drug ineffective [Unknown]
